FAERS Safety Report 13755036 (Version 1)
Quarter: 2017Q3

REPORT INFORMATION
  Report Type: Spontaneous
  Country: US (occurrence: US)
  Receive Date: 20170714
  Receipt Date: 20170714
  Transmission Date: 20171127
  Serious: Yes (Hospitalization)
  Sender: FDA-Public Use
  Company Number: None

PATIENT
  Age: 66 Year
  Sex: Male

DRUGS (3)
  1. EXJADE [Suspect]
     Active Substance: DEFERASIROX
     Indication: HAEMOCHROMATOSIS
     Route: 048
     Dates: start: 20170106
  2. LANTUS [Concomitant]
     Active Substance: INSULIN GLARGINE
  3. CYCLOPHOSPHO [Concomitant]

REACTIONS (3)
  - Arteriosclerosis [None]
  - Hospitalisation [None]
  - Calcinosis [None]

NARRATIVE: CASE EVENT DATE: 201707
